FAERS Safety Report 18973639 (Version 1)
Quarter: 2021Q1

REPORT INFORMATION
  Report Type: Spontaneous
  Country: US (occurrence: US)
  Receive Date: 20210305
  Receipt Date: 20210305
  Transmission Date: 20210420
  Serious: No
  Sender: FDA-Public Use
  Company Number: US-MYLANLABS-2021M1010187

PATIENT
  Sex: Male

DRUGS (1)
  1. SEMGLEE [Suspect]
     Active Substance: INSULIN GLARGINE
     Indication: PRODUCT USED FOR UNKNOWN INDICATION
     Dosage: 3 MILLIGRAM
     Route: 058

REACTIONS (4)
  - Lack of injection site rotation [Unknown]
  - Incorrect dose administered [Not Recovered/Not Resolved]
  - Device use issue [Unknown]
  - Product quality issue [Not Recovered/Not Resolved]
